FAERS Safety Report 6896682-5 (Version None)
Quarter: 2010Q3

REPORT INFORMATION
  Report Type: 
  Country: None (occurrence: None)
  Receive Date: 20100802
  Receipt Date: 20070302
  Transmission Date: 20110219
  Serious: Yes (Other)
  Sender: FDA-Public Use
  Company Number: US-PFIZER INC-2007004440

PATIENT
  Sex: Female
  Weight: 58.1 kg

DRUGS (9)
  1. LYRICA [Suspect]
     Indication: COMPLEX REGIONAL PAIN SYNDROME
     Dates: start: 20061116
  2. LYRICA [Suspect]
  3. OXYCONTIN [Concomitant]
  4. PROZAC [Concomitant]
  5. WELLBUTRIN XL [Concomitant]
  6. BACLOFEN [Concomitant]
  7. NEXIUM [Concomitant]
  8. IMITREX [Concomitant]
  9. FLEXERIL [Concomitant]

REACTIONS (4)
  - ABNORMAL BEHAVIOUR [None]
  - DEPRESSED LEVEL OF CONSCIOUSNESS [None]
  - MEMORY IMPAIRMENT [None]
  - WEIGHT INCREASED [None]
